FAERS Safety Report 5520237-8 (Version None)
Quarter: 2007Q4

REPORT INFORMATION
  Report Type: 
  Country: None (occurrence: None)
  Receive Date: 20071116
  Receipt Date: 20071109
  Transmission Date: 20080405
  Serious: Yes (Disabling, Other)
  Sender: FDA-Public Use
  Company Number: US-MERCK-0603USA01645

PATIENT
  Age: 63 Year
  Sex: Female

DRUGS (4)
  1. FOSAMAX [Suspect]
     Indication: OSTEOPOROSIS
     Route: 048
     Dates: end: 20050801
  2. FOSAMAX [Suspect]
     Route: 048
  3. PREDNISONE [Concomitant]
     Route: 065
     Dates: end: 20011201
  4. METHOTREXATE [Concomitant]
     Route: 065

REACTIONS (5)
  - ANXIETY [None]
  - DEPRESSION [None]
  - OSTEOMYELITIS [None]
  - OSTEONECROSIS [None]
  - RHEUMATOID ARTHRITIS [None]
